FAERS Safety Report 7333078-6 (Version None)
Quarter: 2011Q1

REPORT INFORMATION
  Report Type: 
  Country: None (occurrence: None)
  Receive Date: 20110304
  Receipt Date: 20110218
  Transmission Date: 20110831
  Serious: Yes (Hospitalization)
  Sender: FDA-Public Use
  Company Number: BE-CELGENEUS-013-21880-11021803

PATIENT
  Sex: Male
  Weight: 67 kg

DRUGS (6)
  1. OMEPRAZOLE [Concomitant]
     Route: 065
  2. REVLIMID [Suspect]
     Dosage: 10 MILLIGRAM
     Route: 048
     Dates: start: 20090224, end: 20101206
  3. CIPROXINE [Concomitant]
     Dosage: 1000 MILLIGRAM
     Route: 065
  4. ATACAND [Concomitant]
     Dosage: 8 MILLIGRAM
     Route: 048
     Dates: start: 20070109
  5. ASPIRIN [Concomitant]
     Dosage: 100 MILLIGRAM
     Route: 048
     Dates: start: 20070109
  6. ZOCOR [Concomitant]
     Dosage: 20 MILLIGRAM
     Route: 048
     Dates: start: 20070109

REACTIONS (1)
  - PSEUDOMEMBRANOUS COLITIS [None]
